FAERS Safety Report 11451930 (Version 1)
Quarter: 2015Q3

REPORT INFORMATION
  Report Type: Spontaneous
  Country: US (occurrence: None)
  Receive Date: 20150902
  Receipt Date: 20150902
  Transmission Date: 20151125
  Serious: Yes (Other)
  Sender: FDA-Public Use
  Company Number: None

PATIENT
  Age: 81 Year
  Sex: Female
  Weight: 63 kg

DRUGS (7)
  1. NORMAL SALINE FLUSH [Concomitant]
     Active Substance: SODIUM CHLORIDE
  2. MEMANTINE. [Concomitant]
     Active Substance: MEMANTINE
  3. LORAZEPAM. [Concomitant]
     Active Substance: LORAZEPAM
  4. ZOLEDRONIC ACID [Suspect]
     Active Substance: ZOLEDRONIC ACID
     Indication: OSTEOPOROSIS
     Dosage: 5 MG/ 100 ML  ONCE  INTRAVENOUS
     Route: 042
     Dates: start: 20150608, end: 20150608
  5. RIVASTIGMINE. [Concomitant]
     Active Substance: RIVASTIGMINE
  6. SIMVASTATIN. [Concomitant]
     Active Substance: SIMVASTATIN
  7. CITALOPRAM [Concomitant]
     Active Substance: CITALOPRAM HYDROBROMIDE

REACTIONS (14)
  - Dyspnoea [None]
  - Anxiety [None]
  - Nausea [None]
  - Musculoskeletal pain [None]
  - Skin warm [None]
  - Dry skin [None]
  - Dizziness [None]
  - Tremor [None]
  - Neck pain [None]
  - Dry mouth [None]
  - Myalgia [None]
  - Flushing [None]
  - Headache [None]
  - Tachycardia [None]

NARRATIVE: CASE EVENT DATE: 20150608
